FAERS Safety Report 6114528-X (Version None)
Quarter: 2009Q1

REPORT INFORMATION
  Report Type: 
  Country: None (occurrence: None)
  Receive Date: 20090313
  Receipt Date: 20090305
  Transmission Date: 20090719
  Serious: Yes (Other)
  Sender: FDA-Public Use
  Company Number: US-ROCHE-618648

PATIENT
  Sex: Female
  Weight: 87.1 kg

DRUGS (2)
  1. CAPECITABINE [Suspect]
     Route: 048
  2. CAPECITABINE [Suspect]
     Route: 048
     Dates: start: 20090101, end: 20090217

REACTIONS (2)
  - DISEASE PROGRESSION [None]
  - DRUG INEFFECTIVE [None]
